FAERS Safety Report 9206842 (Version 1)
Quarter: 2013Q2

REPORT INFORMATION
  Report Type: Spontaneous
  Country: FR (occurrence: FR)
  Receive Date: 20130403
  Receipt Date: 20130403
  Transmission Date: 20140414
  Serious: Yes (Hospitalization)
  Sender: FDA-Public Use
  Company Number: FR-SANOFI-AVENTIS-2013SA033698

PATIENT
  Age: 54 Year
  Sex: Male

DRUGS (9)
  1. LEVOFLOXACINE [Suspect]
     Indication: PNEUMOTHORAX
     Route: 048
     Dates: start: 20130221, end: 20130302
  2. LEVOFLOXACINE [Suspect]
     Indication: PNEUMOTHORAX
     Route: 048
     Dates: start: 20130303, end: 20130306
  3. RIFADINE [Suspect]
     Indication: PRODUCT USED FOR UNKNOWN INDICATION
     Route: 048
     Dates: start: 20130221, end: 20130307
  4. LOVENOX [Concomitant]
     Dates: start: 20130226
  5. KARDEGIC [Concomitant]
     Dates: start: 20130226
  6. NICOPATCH [Concomitant]
     Route: 062
  7. MORPHINE [Concomitant]
     Indication: PAIN
  8. PARACETAMOL [Concomitant]
  9. POTASSIUM CHLORIDE [Concomitant]

REACTIONS (2)
  - Convulsion [Recovered/Resolved]
  - Leukocytoclastic vasculitis [Recovered/Resolved]
